FAERS Safety Report 6247700-9 (Version None)
Quarter: 2009Q2

REPORT INFORMATION
  Report Type: 
  Country: None (occurrence: None)
  Receive Date: 20090626
  Receipt Date: 20090623
  Transmission Date: 20091009
  Serious: Yes (Life-Threatening, Hospitalization, Other)
  Sender: FDA-Public Use
  Company Number: US-CELGENEUS-163-21880-09050437

PATIENT
  Sex: Male

DRUGS (1)
  1. REVLIMID [Suspect]
     Indication: MYELODYSPLASTIC SYNDROME
     Route: 048
     Dates: start: 20090226

REACTIONS (4)
  - GINGIVAL BLEEDING [None]
  - PLATELET COUNT DECREASED [None]
  - TOOTH ABSCESS [None]
  - TRANSFUSION REACTION [None]
